FAERS Safety Report 25170732 (Version 1)
Quarter: 2025Q2

REPORT INFORMATION
  Report Type: Spontaneous
  Country: US (occurrence: US)
  Receive Date: 20250408
  Receipt Date: 20250408
  Transmission Date: 20250716
  Serious: No
  Sender: ELI LILLY AND CO
  Company Number: US-ELI_LILLY_AND_COMPANY-US202504005133

PATIENT
  Age: 31 Year
  Sex: Female

DRUGS (16)
  1. MOUNJARO [Suspect]
     Active Substance: TIRZEPATIDE
     Indication: Weight control
     Route: 065
     Dates: start: 20250101
  2. MOUNJARO [Suspect]
     Active Substance: TIRZEPATIDE
     Indication: Weight control
     Route: 065
     Dates: start: 20250101
  3. MOUNJARO [Suspect]
     Active Substance: TIRZEPATIDE
     Indication: Weight control
     Route: 065
     Dates: start: 20250101
  4. MOUNJARO [Suspect]
     Active Substance: TIRZEPATIDE
     Indication: Weight control
     Route: 065
     Dates: start: 20250101
  5. MOUNJARO [Suspect]
     Active Substance: TIRZEPATIDE
     Indication: Systemic lupus erythematosus
  6. MOUNJARO [Suspect]
     Active Substance: TIRZEPATIDE
     Indication: Systemic lupus erythematosus
  7. MOUNJARO [Suspect]
     Active Substance: TIRZEPATIDE
     Indication: Systemic lupus erythematosus
  8. MOUNJARO [Suspect]
     Active Substance: TIRZEPATIDE
     Indication: Systemic lupus erythematosus
  9. MOUNJARO [Suspect]
     Active Substance: TIRZEPATIDE
     Indication: Weight control
     Route: 065
     Dates: start: 20250210, end: 20250228
  10. MOUNJARO [Suspect]
     Active Substance: TIRZEPATIDE
     Indication: Weight control
     Route: 065
     Dates: start: 20250210, end: 20250228
  11. MOUNJARO [Suspect]
     Active Substance: TIRZEPATIDE
     Indication: Weight control
     Route: 065
     Dates: start: 20250210, end: 20250228
  12. MOUNJARO [Suspect]
     Active Substance: TIRZEPATIDE
     Indication: Weight control
     Route: 065
     Dates: start: 20250210, end: 20250228
  13. MOUNJARO [Suspect]
     Active Substance: TIRZEPATIDE
     Indication: Systemic lupus erythematosus
  14. MOUNJARO [Suspect]
     Active Substance: TIRZEPATIDE
     Indication: Systemic lupus erythematosus
  15. MOUNJARO [Suspect]
     Active Substance: TIRZEPATIDE
     Indication: Systemic lupus erythematosus
  16. MOUNJARO [Suspect]
     Active Substance: TIRZEPATIDE
     Indication: Systemic lupus erythematosus

REACTIONS (4)
  - Off label use [Unknown]
  - Nausea [Recovered/Resolved]
  - Abdominal distension [Recovered/Resolved]
  - Flatulence [Recovered/Resolved]

NARRATIVE: CASE EVENT DATE: 20250101
